FAERS Safety Report 8713432 (Version 2)
Quarter: 2013Q2

REPORT INFORMATION
  Report Type: Spontaneous
  Country: CH (occurrence: CH)
  Receive Date: 20120808
  Receipt Date: 20130411
  Transmission Date: 20140414
  Serious: Yes (Hospitalization, Other)
  Sender: FDA-Public Use
  Company Number: CH-JNJFOC-20120801547

PATIENT
  Age: 52 Year
  Sex: Male
  Weight: 90 kg

DRUGS (4)
  1. SIMPONI [Suspect]
     Indication: RHEUMATOID ARTHRITIS
     Route: 058
     Dates: start: 20110210, end: 201102
  2. SIMPONI [Suspect]
     Indication: RHEUMATOID ARTHRITIS
     Dosage: RECEIVED 11 INJECTIONS IN TOTAL
     Route: 058
     Dates: start: 201103, end: 20120329
  3. CELEBREX [Concomitant]
     Indication: RHEUMATOID ARTHRITIS
     Route: 048
  4. PREDNISONE [Concomitant]
     Indication: RHEUMATOID ARTHRITIS
     Route: 048
     Dates: start: 201006

REACTIONS (5)
  - Keratinising squamous cell carcinoma of nasopharynx [Recovering/Resolving]
  - Lymphadenopathy [Recovered/Resolved]
  - Dry eye [Recovered/Resolved]
  - Influenza [Recovered/Resolved]
  - Rash [Recovered/Resolved]
